FAERS Safety Report 5264020-X (Version None)
Quarter: 2007Q1

REPORT INFORMATION
  Report Type: 
  Country: None (occurrence: None)
  Receive Date: 20070313
  Receipt Date: 20070301
  Transmission Date: 20070707
  Serious: Yes (Hospitalization)
  Sender: FDA-Public Use
  Company Number: US-PFIZER INC-2006125211

PATIENT
  Sex: Male
  Weight: 117.9 kg

DRUGS (9)
  1. ATORVASTATIN CALCIUM [Suspect]
     Indication: CORONARY ARTERY DISEASE
     Route: 048
     Dates: start: 20041108, end: 20060926
  2. LABETALOL HCL [Concomitant]
     Route: 048
  3. NORVASC [Concomitant]
     Route: 048
     Dates: start: 20011213
  4. ASPIRIN [Concomitant]
     Route: 048
     Dates: start: 19920324
  5. VALSARTAN [Concomitant]
     Route: 048
     Dates: start: 20040525
  6. ALLOPURINOL [Concomitant]
     Route: 048
     Dates: start: 20030916
  7. HUMALOG [Concomitant]
     Dosage: TEXT:75/25
     Route: 058
     Dates: start: 20060401
  8. FUROSEMIDE [Concomitant]
     Route: 048
     Dates: start: 20051001
  9. OXYGEN [Concomitant]

REACTIONS (2)
  - DERMATOMYOSITIS [None]
  - PNEUMONIA [None]
